FAERS Safety Report 19129039 (Version 4)
Quarter: 2021Q2

REPORT INFORMATION
  Report Type: Spontaneous
  Country: US (occurrence: US)
  Receive Date: 20210413
  Receipt Date: 20210507
  Transmission Date: 20210717
  Serious: No
  Sender: FDA-Public Use
  Company Number: US-SA-2021SA112187

PATIENT
  Age: 61 Year
  Sex: Male

DRUGS (2)
  1. ADMELOG [Suspect]
     Active Substance: INSULIN LISPRO
     Indication: TYPE 2 DIABETES MELLITUS
     Dosage: 10 IU WITH ADJUSTMENTS FOR FOOD INTAKE BEFORE MEALS AT LEAST THREE TIMES A DAY
     Route: 065
     Dates: start: 2018
  2. ADMELOG [Suspect]
     Active Substance: INSULIN LISPRO
     Dosage: HE KEPT INJECTING MORE ADMELOG TO COUNTERACT THE HIGH BLOOD SUGAR
     Route: 065
     Dates: start: 202103

REACTIONS (3)
  - Blood glucose increased [Recovered/Resolved]
  - Product storage error [Unknown]
  - Feeling abnormal [Recovered/Resolved]

NARRATIVE: CASE EVENT DATE: 20210325
